FAERS Safety Report 13659361 (Version 1)
Quarter: 2017Q2

REPORT INFORMATION
  Report Type: Report from Study
  Country: US (occurrence: US)
  Receive Date: 20170616
  Receipt Date: 20170616
  Transmission Date: 20170830
  Serious: No
  Sender: FDA-Public Use
  Company Number: PHEH2017US017954

PATIENT
  Age: 79 Year
  Sex: Male

DRUGS (1)
  1. JADENU [Suspect]
     Active Substance: DEFERASIROX
     Indication: ANAEMIA
     Dosage: 720 MG, QD
     Route: 048
     Dates: start: 20161227, end: 20170130

REACTIONS (3)
  - Decreased appetite [Unknown]
  - Nausea [Unknown]
  - Abdominal pain [Recovered/Resolved]

NARRATIVE: CASE EVENT DATE: 20161228
